FAERS Safety Report 13705785 (Version 1)
Quarter: 2017Q2

REPORT INFORMATION
  Report Type: Report from Study
  Country: US (occurrence: US)
  Receive Date: 20170630
  Receipt Date: 20170630
  Transmission Date: 20170830
  Serious: Yes (Hospitalization)
  Sender: FDA-Public Use
  Company Number: US-BAYER-2017-074309

PATIENT
  Age: 79 Year
  Sex: Female

DRUGS (2)
  1. STIVARGA [Suspect]
     Active Substance: REGORAFENIB
     Indication: COLORECTAL CANCER METASTATIC
     Dosage: 160 MG, QD
     Route: 048
     Dates: start: 20170504, end: 20170605
  2. STIVARGA [Suspect]
     Active Substance: REGORAFENIB
     Indication: COLORECTAL CANCER METASTATIC
     Dosage: 160 MG, QD
     Dates: start: 20170414, end: 20170504

REACTIONS (7)
  - Pollakiuria [Recovered/Resolved]
  - Stoma site haemorrhage [None]
  - Disorientation [Recovered/Resolved]
  - Fatigue [Recovering/Resolving]
  - Vomiting [None]
  - Dehydration [None]
  - Laboratory test abnormal [None]

NARRATIVE: CASE EVENT DATE: 2017
